FAERS Safety Report 5199837-3 (Version None)
Quarter: 2006Q4

REPORT INFORMATION
  Report Type: 
  Country: None (occurrence: None)
  Receive Date: 20061229
  Receipt Date: 20061218
  Transmission Date: 20070319
  Serious: Yes (Hospitalization, Other)
  Sender: FDA-Public Use
  Company Number: FABR-11705

PATIENT
  Age: 54 Year
  Sex: Female

DRUGS (11)
  1. FABRAZYME [Suspect]
     Indication: FABRY'S DISEASE
     Dosage: 70 MG IV
     Route: 042
     Dates: start: 20040214
  2. CALCIUM CHANNEL [Concomitant]
  3. STATINS [Concomitant]
  4. TRICYCLIC ANTIDEPRESSANTS [Concomitant]
  5. IXEL [Concomitant]
  6. REVIA [Concomitant]
  7. SERESTA [Concomitant]
  8. MEPRONIZINE [Concomitant]
  9. PRAVASTATIN [Concomitant]
  10. MEDIATOR [Concomitant]
  11. ZANIDIP [Concomitant]

REACTIONS (7)
  - ANGIONEUROTIC OEDEMA [None]
  - HEADACHE [None]
  - HOT FLUSH [None]
  - INFUSION RELATED REACTION [None]
  - NAUSEA [None]
  - RASH [None]
  - SUICIDE ATTEMPT [None]
